FAERS Safety Report 6072810-9 (Version None)
Quarter: 2009Q1

REPORT INFORMATION
  Report Type: 
  Country: None (occurrence: None)
  Receive Date: 20090210
  Receipt Date: 20090202
  Transmission Date: 20090719
  Serious: Yes (Hospitalization)
  Sender: FDA-Public Use
  Company Number: AT-GENENTECH-276808

PATIENT
  Age: 55 Year
  Sex: Male

DRUGS (8)
  1. MABTHERA [Suspect]
     Indication: NON-HODGKIN'S LYMPHOMA
  2. CYCLOPHOSPHAMIDE [Suspect]
     Indication: NON-HODGKIN'S LYMPHOMA
  3. VINCRISTINE [Suspect]
     Indication: NON-HODGKIN'S LYMPHOMA
  4. DOXORUBICIN HCL [Suspect]
     Indication: NON-HODGKIN'S LYMPHOMA
  5. PREDNISOLONE [Suspect]
     Indication: NON-HODGKIN'S LYMPHOMA
  6. BLEOMYCIN SULFATE [Concomitant]
     Indication: NON-HODGKIN'S LYMPHOMA
  7. VINDESINE [Concomitant]
     Indication: NON-HODGKIN'S LYMPHOMA
  8. METHOTREXATE [Concomitant]
     Indication: NON-HODGKIN'S LYMPHOMA

REACTIONS (5)
  - B-CELL LYMPHOMA RECURRENT [None]
  - GENERAL PHYSICAL HEALTH DETERIORATION [None]
  - LOCKED-IN SYNDROME [None]
  - PNEUMONIA [None]
  - PROGRESSIVE MULTIFOCAL LEUKOENCEPHALOPATHY [None]
